FAERS Safety Report 6597747-8 (Version None)
Quarter: 2010Q1

REPORT INFORMATION
  Report Type: 
  Country: None (occurrence: None)
  Receive Date: 20100216
  Receipt Date: 20100201
  Transmission Date: 20100710
  Serious: Yes (Other)
  Sender: FDA-Public Use
  Company Number: 231140J10USA

PATIENT
  Age: 40 Year
  Sex: Female

DRUGS (8)
  1. REBIF [Suspect]
     Indication: MULTIPLE SCLEROSIS
     Dosage: 44 MCG, 3 IN 1 WEEKS, SUBCUTANEOUS
     Route: 058
     Dates: start: 20051223
  2. CYMBALTA [Concomitant]
  3. LEXAPRO [Concomitant]
  4. VALIUM [Concomitant]
  5. PROVIGIL [Concomitant]
  6. MAXALT (RIZATRIPTAN) [Concomitant]
  7. PROVA (FROVATRIPTAN SUCCINATE MONOHYDRATE) [Concomitant]
  8. RELPAX (ELECTRIPTAN HYDROBROMIDE) [Concomitant]

REACTIONS (4)
  - FALL [None]
  - FOOT FRACTURE [None]
  - LIGAMENT RUPTURE [None]
  - OSTEOPOROSIS [None]
